FAERS Safety Report 18046486 (Version 1)
Quarter: 2020Q3

REPORT INFORMATION
  Report Type: Spontaneous
  Country: CA (occurrence: CA)
  Receive Date: 20200720
  Receipt Date: 20200720
  Transmission Date: 20201103
  Serious: Yes (Death, Other)
  Sender: FDA-Public Use
  Company Number: NVSC2020CA202986

PATIENT
  Age: 11 Year
  Sex: Male
  Weight: 25 kg

DRUGS (14)
  1. IRINOTECAN [Suspect]
     Active Substance: IRINOTECAN
     Indication: NEUROBLASTOMA RECURRENT
     Dosage: UNK
     Route: 065
  2. TEMOZOLOMIDE. [Suspect]
     Active Substance: TEMOZOLOMIDE
     Indication: NEUROBLASTOMA RECURRENT
     Dosage: UNK
     Route: 065
  3. HYDROMORPHONE HYDROCHLORIDE. [Suspect]
     Active Substance: HYDROMORPHONE HYDROCHLORIDE
     Indication: PAIN
     Dosage: UNK
     Route: 065
     Dates: start: 20191216
  4. CANNABIDIOL [Suspect]
     Active Substance: CANNABIDIOL
     Indication: NAUSEA
  5. CANNABIDIOL [Suspect]
     Active Substance: CANNABIDIOL
     Indication: PAIN
     Dosage: UNK
     Route: 065
     Dates: start: 20200502
  6. DINUTUXIMAB [Suspect]
     Active Substance: DINUTUXIMAB
     Indication: METASTASES TO LIVER
  7. DINUTUXIMAB [Suspect]
     Active Substance: DINUTUXIMAB
     Indication: METASTASES TO BONE
  8. DEXAMETHASONE SODIUM PHOSPHATE. [Suspect]
     Active Substance: DEXAMETHASONE SODIUM PHOSPHATE
     Indication: NEOPLASM PROGRESSION
     Dosage: UNK
     Route: 065
     Dates: start: 20190424
  9. METHADONE HYDROCHLORIDE. [Suspect]
     Active Substance: METHADONE HYDROCHLORIDE
     Indication: PAIN
     Dosage: UNK
     Route: 065
     Dates: start: 20191216
  10. FAMOTIDINE. [Suspect]
     Active Substance: FAMOTIDINE
     Indication: GASTRIC DISORDER
     Dosage: UNK
     Route: 065
     Dates: start: 20200310
  11. GABAPENTIN. [Suspect]
     Active Substance: GABAPENTIN
     Indication: PAIN
     Dosage: UNK
     Route: 065
  12. LORAZEPAM. [Suspect]
     Active Substance: LORAZEPAM
     Indication: ANXIETY
     Dosage: UNK
     Route: 065
     Dates: start: 20191216
  13. LORLATINIB [Suspect]
     Active Substance: LORLATINIB
     Indication: NEUROBLASTOMA RECURRENT
     Dosage: 100 MG, QD
     Route: 048
     Dates: start: 20200412
  14. DINUTUXIMAB [Suspect]
     Active Substance: DINUTUXIMAB
     Indication: NEUROBLASTOMA RECURRENT
     Dosage: UNK
     Route: 065

REACTIONS (11)
  - Retro-orbital neoplasm [Unknown]
  - Fatigue [Unknown]
  - Nerve compression [Unknown]
  - Metastases to spine [Unknown]
  - Anaemia [Recovered/Resolved]
  - Thrombocytopenia [Not Recovered/Not Resolved]
  - Metastases to liver [Unknown]
  - Malignant cranial nerve neoplasm [Unknown]
  - Pallor [Unknown]
  - Neuroblastoma recurrent [Fatal]
  - Leukocytosis [Unknown]

NARRATIVE: CASE EVENT DATE: 20200420
